FAERS Safety Report 9720153 (Version 3)
Quarter: 2013Q4

REPORT INFORMATION
  Report Type: Spontaneous
  Country: US (occurrence: US)
  Receive Date: 20131129
  Receipt Date: 20131204
  Transmission Date: 20140711
  Serious: Yes (Hospitalization, Other)
  Sender: FDA-Public Use
  Company Number: CHPA2012US017161

PATIENT
  Age: 62 Year
  Sex: Female

DRUGS (15)
  1. EXCEDRIN MIGRAINE [Suspect]
     Indication: HEADACHE
     Dosage: UNK, UNK
     Route: 048
  2. EXCEDRIN MIGRAINE [Suspect]
     Indication: OFF LABEL USE
  3. EXCEDRIN MIGRAINE [Suspect]
     Indication: MIGRAINE
  4. EXCEDRIN TENSION HEADACHE [Suspect]
     Indication: MIGRAINE
     Route: 048
  5. EXCEDRIN TENSION HEADACHE [Suspect]
     Indication: FIBROMYALGIA
  6. EXCEDRIN TENSION HEADACHE [Suspect]
     Indication: OFF LABEL USE
  7. EXCEDRIN TENSION HEADACHE [Suspect]
     Indication: HEADACHE
  8. EXCEDRIN TENSION HEADACHE [Suspect]
     Indication: MIGRAINE
     Dosage: 2 DF, PRN
     Route: 048
  9. EXCEDRIN TENSION HEADACHE [Suspect]
     Indication: FIBROMYALGIA
  10. EXCEDRIN TENSION HEADACHE [Suspect]
     Indication: OFF LABEL USE
  11. EXCEDRIN TENSION HEADACHE [Suspect]
     Indication: HEADACHE
  12. EXCEDRIN TENSION HEADACHE [Suspect]
     Indication: FIBROMYALGIA
     Dosage: 1 DF, QW
     Route: 048
  13. EXCEDRIN TENSION HEADACHE [Suspect]
     Indication: OFF LABEL USE
  14. EXCEDRIN TENSION HEADACHE [Suspect]
     Indication: HEADACHE
  15. EXCEDRIN TENSION HEADACHE [Suspect]
     Indication: PAIN

REACTIONS (9)
  - Gastric ulcer [Unknown]
  - Memory impairment [Unknown]
  - Influenza [Unknown]
  - Cough [Unknown]
  - Abdominal discomfort [Unknown]
  - Headache [Unknown]
  - Drug ineffective [Unknown]
  - Drug ineffective for unapproved indication [Unknown]
  - Therapeutic response unexpected [Unknown]
